FAERS Safety Report 11657516 (Version 2)
Quarter: 2016Q3

REPORT INFORMATION
  Report Type: Spontaneous
  Country: JP (occurrence: JP)
  Receive Date: 20151023
  Receipt Date: 20160819
  Transmission Date: 20161109
  Serious: Yes (Other)
  Sender: FDA-Public Use
  Company Number: JP-PFIZER INC-2015314804

PATIENT
  Age: 58 Year
  Sex: Female

DRUGS (2)
  1. KINDAVATE [Concomitant]
     Active Substance: CLOBETASONE BUTYRATE
     Indication: ECZEMA
     Dosage: UNK
  2. TERRAMYCIN A [Suspect]
     Active Substance: OXYTETRACYCLINE HYDROCHLORIDE\POLYMYXIN B SULFATE
     Indication: WOUND
     Dosage: UNK, 2X/DAY
     Route: 061

REACTIONS (4)
  - Visual impairment [Recovering/Resolving]
  - Product use issue [Unknown]
  - Retinal detachment [Unknown]
  - Chorioretinopathy [Recovering/Resolving]

NARRATIVE: CASE EVENT DATE: 20150904
